FAERS Safety Report 4544272-1 (Version None)
Quarter: 2005Q1

REPORT INFORMATION
  Report Type: 
  Country: None (occurrence: None)
  Receive Date: 20050104
  Receipt Date: 20041220
  Transmission Date: 20050727
  Serious: Yes (Death)
  Sender: FDA-Public Use
  Company Number: DK-ABBOTT-04P-044-0284495-00

PATIENT
  Sex: Female

DRUGS (5)
  1. KALETRA [Suspect]
     Indication: HIV INFECTION
     Dosage: 533/133MGX2
     Route: 048
     Dates: start: 20041108, end: 20041126
  2. EFAVIRENZ [Suspect]
     Indication: PROGRESSIVE MULTIFOCAL LEUKOENCEPHALOPATHY
     Route: 048
     Dates: start: 20041108, end: 20041126
  3. BACTRIM [Concomitant]
     Indication: INFECTION PROPHYLAXIS
     Dosage: 400/80MG
     Route: 048
     Dates: start: 20041112
  4. TRIZIVIR [Concomitant]
     Indication: PROGRESSIVE MULTIFOCAL LEUKOENCEPHALOPATHY
     Dosage: 300/300/150X2
     Route: 048
     Dates: start: 20041207
  5. TRIZIVIR [Concomitant]
     Indication: ACQUIRED IMMUNODEFICIENCY SYNDROME

REACTIONS (5)
  - CONDITION AGGRAVATED [None]
  - DEPRESSED LEVEL OF CONSCIOUSNESS [None]
  - GENERAL PHYSICAL HEALTH DETERIORATION [None]
  - HEMIPARESIS [None]
  - IMMUNE RECONSTITUTION SYNDROME [None]
